FAERS Safety Report 4462443-X (Version None)
Quarter: 2004Q3

REPORT INFORMATION
  Report Type: 
  Country: None (occurrence: None)
  Receive Date: 20040924
  Receipt Date: 20040913
  Transmission Date: 20050211
  Serious: Yes (Other)
  Sender: FDA-Public Use
  Company Number: 2004062447

PATIENT
  Sex: Male
  Weight: 93.441 kg

DRUGS (6)
  1. DILANTIN KAPSEAL [Suspect]
     Indication: CONVULSION
     Dosage: 300 MG (1 IN 1 D), ORAL
     Route: 048
     Dates: start: 20010101
  2. ALL OTHER THERAPEUTIC PRODUCTS (ALL OTHER THERAPEUTIC PRODUCTS) [Suspect]
     Indication: ILL-DEFINED DISORDER
  3. SIMVASTATIN [Concomitant]
  4. ESCITALOPRAM (ESCITALOPRAM) [Concomitant]
  5. ASPIRIN [Concomitant]
  6. WARFARIN (WARFARIN) [Concomitant]

REACTIONS (10)
  - ADVERSE DRUG REACTION [None]
  - CONVULSION [None]
  - DEAFNESS BILATERAL [None]
  - DEMENTIA [None]
  - DEMENTIA ALZHEIMER'S TYPE [None]
  - DIFFICULTY IN WALKING [None]
  - DRUG INTERACTION [None]
  - GAIT DISTURBANCE [None]
  - OVERDOSE [None]
  - SPEECH DISORDER [None]
